FAERS Safety Report 5490550-1 (Version None)
Quarter: 2007Q4

REPORT INFORMATION
  Report Type: 
  Country: None (occurrence: None)
  Receive Date: 20071019
  Receipt Date: 20071009
  Transmission Date: 20080405
  Serious: Yes (Other)
  Sender: FDA-Public Use
  Company Number: US-JNJFOC-20071003852

PATIENT
  Sex: Male

DRUGS (1)
  1. MYLANTA [Suspect]
     Indication: DRUG USE FOR UNKNOWN INDICATION
     Dosage: DOSE UNKNOWN, REGULARLY FOR 30 YEARS

REACTIONS (1)
  - BLADDER CANCER [None]
